FAERS Safety Report 18563706 (Version 1)
Quarter: 2020Q4

REPORT INFORMATION
  Report Type: Spontaneous
  Country: CA (occurrence: CA)
  Receive Date: 20201201
  Receipt Date: 20201201
  Transmission Date: 20210114
  Serious: Yes (Death, Other)
  Sender: FDA-Public Use
  Company Number: CA-GLAXOSMITHKLINE-CA2020GSK236933

PATIENT
  Sex: Female

DRUGS (4)
  1. AVANDIA [Suspect]
     Active Substance: ROSIGLITAZONE MALEATE
     Dosage: 4 MG, BID
     Route: 048
     Dates: start: 20060216
  2. AVANDIA [Suspect]
     Active Substance: ROSIGLITAZONE MALEATE
     Dosage: 8 MG, QD
     Route: 048
     Dates: start: 20010118, end: 20050622
  3. AVANDAMET [Suspect]
     Active Substance: METFORMIN HYDROCHLORIDE\ROSIGLITAZONE MALEATE
     Indication: DIABETES MELLITUS
     Dosage: 4/1000MG, BID
     Route: 048
     Dates: start: 20050815, end: 20101112
  4. AVANDIA [Suspect]
     Active Substance: ROSIGLITAZONE MALEATE
     Indication: DIABETES MELLITUS
     Dosage: 4MG, QD
     Route: 048
     Dates: start: 20001005, end: 20101202

REACTIONS (3)
  - Myocardial infarction [Unknown]
  - Cardiac failure congestive [Unknown]
  - Death [Fatal]
